FAERS Safety Report 6077030-X (Version None)
Quarter: 2009Q1

REPORT INFORMATION
  Report Type: 
  Country: None (occurrence: None)
  Receive Date: 20090213
  Receipt Date: 20090205
  Transmission Date: 20090719
  Serious: Yes (Hospitalization)
  Sender: FDA-Public Use
  Company Number: JP-ABBOTT-07P-087-0431190-00

PATIENT
  Age: 83 Year
  Sex: Male
  Weight: 65.6 kg

DRUGS (6)
  1. LEUPROLIDE ACETATE [Suspect]
     Indication: PROSTATE CANCER STAGE II
     Route: 058
     Dates: start: 20060306, end: 20061002
  2. LEUPROLIDE ACETATE [Suspect]
     Dates: start: 20050812, end: 20060306
  3. BICALUTAMIDE [Suspect]
     Indication: PROSTATE CANCER STAGE II
     Route: 048
     Dates: end: 20060714
  4. BICALUTAMIDE [Suspect]
     Route: 048
     Dates: start: 20060807, end: 20061014
  5. NAFTOPIDIL [Concomitant]
     Indication: DYSURIA
     Route: 048
     Dates: end: 20061014
  6. UFT [Concomitant]
     Indication: GALLBLADDER CANCER
     Route: 048
     Dates: start: 20060814, end: 20061014

REACTIONS (2)
  - ALTERED STATE OF CONSCIOUSNESS [None]
  - CEREBRAL INFARCTION [None]
